FAERS Safety Report 8274392-X (Version None)
Quarter: 2012Q2

REPORT INFORMATION
  Report Type: 
  Country: None (occurrence: None)
  Receive Date: 20120411
  Receipt Date: 20120402
  Transmission Date: 20120825
  Serious: No
  Sender: FDA-Public Use
  Company Number: BR-US-EMD SERONO, INC.-7112926

PATIENT
  Sex: Female

DRUGS (3)
  1. DYPIRONE (DIPYRONE) [Concomitant]
     Indication: PRODUCT USED FOR UNKNOWN INDICATION
  2. CLONAZEPAM [Concomitant]
     Indication: PRODUCT USED FOR UNKNOWN INDICATION
  3. REBIF [Suspect]
     Indication: RELAPSING-REMITTING MULTIPLE SCLEROSIS
     Dates: start: 20120127

REACTIONS (5)
  - INJECTION SITE ERYTHEMA [None]
  - HEADACHE [None]
  - MUSCULAR WEAKNESS [None]
  - FATIGUE [None]
  - PAIN [None]
